FAERS Safety Report 7851384-3 (Version None)
Quarter: 2011Q4

REPORT INFORMATION
  Report Type: 
  Country: None (occurrence: None)
  Receive Date: 20111026
  Receipt Date: 20111017
  Transmission Date: 20120403
  Serious: Yes (Hospitalization)
  Sender: FDA-Public Use
  Company Number: US-JNJFOC-20110912395

PATIENT
  Sex: Female
  Weight: 76.2 kg

DRUGS (10)
  1. INFLIXIMAB, RECOMBINANT [Suspect]
     Indication: CROHN'S DISEASE
     Route: 042
     Dates: start: 20050817
  2. INFLIXIMAB, RECOMBINANT [Suspect]
     Route: 042
  3. AZATHIOPRINE [Concomitant]
  4. INFLIXIMAB, RECOMBINANT [Suspect]
     Route: 042
     Dates: start: 20020712, end: 20030905
  5. INFLIXIMAB, RECOMBINANT [Suspect]
     Route: 042
     Dates: start: 20060308
  6. ANTIBIOTICS [Concomitant]
  7. NARCOTIC ANALGESICS, NOS [Concomitant]
  8. INFLIXIMAB, RECOMBINANT [Suspect]
     Route: 042
     Dates: start: 20031024, end: 20040609
  9. PREDNISONE [Concomitant]
  10. INFLIXIMAB, RECOMBINANT [Suspect]
     Route: 042
     Dates: start: 20040721, end: 20041130

REACTIONS (3)
  - INTESTINAL STENOSIS [None]
  - OSTEOPOROSIS [None]
  - ABDOMINAL PAIN [None]
